FAERS Safety Report 5149419-4 (Version None)
Quarter: 2006Q4

REPORT INFORMATION
  Report Type: 
  Country: None (occurrence: None)
  Receive Date: 20061113
  Receipt Date: 20060106
  Transmission Date: 20070319
  Serious: Yes (Other)
  Sender: FDA-Public Use
  Company Number: 431578

PATIENT
  Age: 87 Year
  Sex: Female

DRUGS (11)
  1. COREG [Suspect]
     Dosage: 3.125MG TWICE PER DAY
     Route: 048
  2. FOSAMAX [Concomitant]
     Dosage: 70MG WEEKLY
  3. ASPIRIN [Concomitant]
     Dosage: 81MG PER DAY
  4. LOVENOX [Concomitant]
     Dosage: 40MG PER DAY
     Route: 058
  5. PEPCID [Concomitant]
     Dosage: 20MG TWICE PER DAY
  6. LASIX [Concomitant]
     Dosage: 40MG PER DAY
  7. NAMENDA [Concomitant]
     Dosage: 10MG TWICE PER DAY
  8. LOPRESSOR [Concomitant]
     Dosage: 25MG TWICE PER DAY
  9. PRINIVIL [Concomitant]
  10. NU-IRON [Concomitant]
     Dosage: 150MG TWICE PER DAY
  11. ALDACTONE [Concomitant]
     Dosage: 25MG PER DAY

REACTIONS (1)
  - THROMBOCYTOPENIA [None]
